FAERS Safety Report 5091586-5 (Version None)
Quarter: 2006Q3

REPORT INFORMATION
  Report Type: 
  Country: None (occurrence: None)
  Receive Date: 20060727
  Receipt Date: 20060411
  Transmission Date: 20061208
  Serious: Yes (Other)
  Sender: FDA-Public Use
  Company Number: 2006050750

PATIENT
  Sex: Female
  Weight: 65.318 kg

DRUGS (3)
  1. LYRICA [Suspect]
     Indication: NEUROPATHY
     Dosage: 500 MG (EVERY DAY),OPHTHALMIC
     Route: 047
     Dates: start: 20051201
  2. NEURONTIN [Suspect]
     Indication: NEUROPATHY
     Dosage: ORAL
     Route: 048
     Dates: start: 20050101, end: 20051201
  3. LACTULOSE [Concomitant]

REACTIONS (4)
  - DRUG INEFFECTIVE [None]
  - INSOMNIA [None]
  - PARAESTHESIA [None]
  - VISION BLURRED [None]
